FAERS Safety Report 8977478 (Version 1)
Quarter: 2012Q4

REPORT INFORMATION
  Report Type: 
  Country: US (occurrence: US)
  Receive Date: 20121219
  Receipt Date: 20121219
  Transmission Date: 20130627
  Serious: No
  Sender: FDA-Public Use
  Company Number: US-AMGEN-USASP2012059024

PATIENT
  Age: 82 Year
  Sex: Female

DRUGS (8)
  1. PROLIA [Suspect]
     Indication: OSTEOPOROSIS POSTMENOPAUSAL
     Dosage: UNK UNK, q6mo
     Dates: start: 201108
  2. LISINOPRIL [Concomitant]
     Dosage: UNK
  3. LIPITOR [Concomitant]
     Dosage: UNK
  4. JANUVIA [Concomitant]
     Dosage: UNK
  5. TORSEMIDE [Concomitant]
     Dosage: UNK
  6. KLORHEXIDIN [Concomitant]
     Dosage: UNK
  7. CENTRUM SILVER [Concomitant]
     Dosage: UNK
  8. FISH OIL [Concomitant]
     Dosage: UNK

REACTIONS (2)
  - Pain [Not Recovered/Not Resolved]
  - Mobility decreased [Not Recovered/Not Resolved]
